FAERS Safety Report 17683671 (Version 1)
Quarter: 2020Q2

REPORT INFORMATION
  Report Type: Report from Study
  Country: US (occurrence: US)
  Receive Date: 20200420
  Receipt Date: 20200420
  Transmission Date: 20200714
  Serious: Yes (Death)
  Sender: FDA-Public Use
  Company Number: US-ROCHE-2584837

PATIENT
  Sex: Male

DRUGS (2)
  1. RITUXAN [Suspect]
     Active Substance: RITUXIMAB
     Indication: DIFFUSE LARGE B-CELL LYMPHOMA
     Dosage: 10 ML VIAL INFUSE 790 MG INTRAVENOUSLY EVERY 21 DAYS
     Route: 042
  2. RITUXAN [Suspect]
     Active Substance: RITUXIMAB
     Dosage: 50 ML VIAL INFUSE 790 MG INTRAVENOUSLY EVERY 21 DAYS
     Route: 042

REACTIONS (1)
  - Death [Fatal]
